FAERS Safety Report 16012304 (Version 1)
Quarter: 2019Q1

REPORT INFORMATION
  Report Type: Report from Study
  Country: ES (occurrence: ES)
  Receive Date: 20190227
  Receipt Date: 20190227
  Transmission Date: 20190418
  Serious: Yes (Death, Hospitalization)
  Sender: FDA-Public Use
  Company Number: ES-HORIZON-PRE-0093-2019

PATIENT
  Age: 64 Year
  Sex: Female

DRUGS (6)
  1. SIMVASTATIN (1023A) [Concomitant]
     Indication: DYSLIPIDAEMIA
     Dosage: 20 MG DAILY
     Route: 048
     Dates: start: 20121116, end: 20180211
  2. AREMIS 50 MG [Concomitant]
     Indication: DEPRESSION
     Dosage: 50 MG EVERY 15 DAYS
     Route: 048
     Dates: start: 20080214, end: 20180211
  3. AMLODIPINE (2503A) [Concomitant]
     Active Substance: AMLODIPINE BESYLATE
     Indication: HYPERTENSION
     Dosage: 5 MG DAILY
     Route: 048
     Dates: start: 20171120, end: 20180211
  4. TACROLIMUS (2694A) [Interacting]
     Active Substance: TACROLIMUS
     Indication: PROPHYLAXIS
     Dosage: 3 MG DAILY
     Route: 048
     Dates: start: 20171218, end: 20180211
  5. OMEPRAZOLE (2141A) [Concomitant]
     Active Substance: OMEPRAZOLE SODIUM
     Indication: PROPHYLAXIS
     Dosage: 20 MG DAILY
     Route: 048
     Dates: end: 20180211
  6. PREDNISONE. [Suspect]
     Active Substance: PREDNISONE
     Indication: PROPHYLAXIS
     Dosage: 20 MG DAILY
     Route: 048
     Dates: start: 20171219, end: 20180211

REACTIONS (1)
  - Pneumocystis jirovecii pneumonia [Fatal]

NARRATIVE: CASE EVENT DATE: 20180207
